FAERS Safety Report 7128894-X (Version None)
Quarter: 2010Q4

REPORT INFORMATION
  Report Type: 
  Country: None (occurrence: None)
  Receive Date: 20101130
  Receipt Date: 20101122
  Transmission Date: 20110411
  Serious: Yes (Disabling, Other)
  Sender: FDA-Public Use
  Company Number: A0875760A

PATIENT
  Age: 50 Year
  Sex: Female
  Weight: 66.8 kg

DRUGS (6)
  1. LAMOTRIGINE [Suspect]
     Indication: DEPRESSION
     Dosage: 200MG TWICE PER DAY
     Route: 048
  2. LEVOTHYROXINE SODIUM [Concomitant]
     Dosage: .1MCG PER DAY
     Route: 048
  3. DIAZEPAM [Concomitant]
     Indication: PAIN
     Dosage: 5MG AS REQUIRED
     Route: 048
  4. RITALIN [Concomitant]
     Indication: FATIGUE
     Dosage: 5MG VARIABLE DOSE
     Route: 048
  5. ORAMORPH SR [Concomitant]
     Indication: PAIN
     Dates: end: 20100901
  6. AMBIEN [Concomitant]
     Indication: INSOMNIA
     Dosage: 10MG AS REQUIRED

REACTIONS (2)
  - DEPRESSION [None]
  - HEADACHE [None]
